FAERS Safety Report 4337775-6 (Version None)
Quarter: 2004Q2

REPORT INFORMATION
  Report Type: 
  Country: None (occurrence: None)
  Receive Date: 20040407
  Receipt Date: 20040326
  Transmission Date: 20050107
  Serious: Yes (Other)
  Sender: FDA-Public Use
  Company Number: NL-JNJFOC-20040306052

PATIENT
  Age: 43 Year
  Sex: Female

DRUGS (1)
  1. REMICADE [Suspect]
     Indication: RHEUMATOID ARTHRITIS
     Dosage: SEE IMAGE
     Route: 042

REACTIONS (6)
  - DIABETES MELLITUS [None]
  - DIPLOPIA [None]
  - INTRAOCULAR PRESSURE DECREASED [None]
  - MYDRIASIS [None]
  - OPHTHALMOPLEGIA [None]
  - THYROID DISORDER [None]
